FAERS Safety Report 5675900-5 (Version None)
Quarter: 2008Q1

REPORT INFORMATION
  Report Type: 
  Country: None (occurrence: None)
  Receive Date: 20080321
  Receipt Date: 20080317
  Transmission Date: 20080703
  Serious: Yes (Hospitalization, Disabling, Other)
  Sender: FDA-Public Use
  Company Number: B0470352A

PATIENT
  Age: 33 Year
  Sex: Female
  Weight: 63.6 kg

DRUGS (2)
  1. KIVEXA [Suspect]
     Indication: HIV INFECTION
     Dosage: 1TAB PER DAY
     Route: 048
     Dates: start: 20070305, end: 20070324
  2. NEVIRAPINE [Suspect]
     Indication: HIV INFECTION
     Dosage: 200MG PER DAY
     Route: 048
     Dates: start: 20070305, end: 20070324

REACTIONS (3)
  - SKIN EXFOLIATION [None]
  - SKIN LESION [None]
  - STEVENS-JOHNSON SYNDROME [None]
